FAERS Safety Report 21361431 (Version 1)
Quarter: 2022Q3

REPORT INFORMATION
  Report Type: Spontaneous
  Country: US (occurrence: US)
  Receive Date: 20220921
  Receipt Date: 20220921
  Transmission Date: 20221027
  Serious: No
  Sender: FDA-Public Use
  Company Number: US-ELI_LILLY_AND_COMPANY-US202208014093

PATIENT
  Sex: Female

DRUGS (3)
  1. TRULICITY [Suspect]
     Active Substance: DULAGLUTIDE
     Indication: Product used for unknown indication
     Dosage: 3 MG, UNKNOWN
     Route: 065
     Dates: start: 2021
  2. FARXIGA [Suspect]
     Active Substance: DAPAGLIFLOZIN PROPANEDIOL
     Indication: Product used for unknown indication
     Dosage: UNK UNK, UNKNOWN
     Route: 065
  3. GLIMEPIRIDE [Concomitant]
     Active Substance: GLIMEPIRIDE
     Indication: Product used for unknown indication

REACTIONS (12)
  - Dehydration [Recovered/Resolved]
  - Hiccups [Recovered/Resolved]
  - Tonsillar inflammation [Recovered/Resolved]
  - Blood glucose increased [Unknown]
  - Vaginal infection [Recovered/Resolved]
  - Weight decreased [Recovered/Resolved]
  - COVID-19 [Unknown]
  - Skin disorder [Recovered/Resolved]
  - Inadequate diet [Unknown]
  - Eructation [Recovered/Resolved]
  - Constipation [Recovering/Resolving]
  - Gastrooesophageal reflux disease [Unknown]

NARRATIVE: CASE EVENT DATE: 20210101
